FAERS Safety Report 16532595 (Version 1)
Quarter: 2019Q3

REPORT INFORMATION
  Report Type: Spontaneous
  Country: US (occurrence: US)
  Receive Date: 20190703
  Receipt Date: 20190703
  Transmission Date: 20191004
  Serious: Yes (Hospitalization)
  Sender: FDA-Public Use
  Company Number: None

PATIENT
  Age: 52 Year
  Sex: Female

DRUGS (16)
  1. FOLIC ACID. [Concomitant]
     Active Substance: FOLIC ACID
     Dates: start: 20190112
  2. MAGNESIUM-OX [Concomitant]
     Dates: start: 20190526
  3. AMLODIPINE [Concomitant]
     Active Substance: AMLODIPINE BESYLATE
     Dates: start: 20190108
  4. CELECOXIB. [Concomitant]
     Active Substance: CELECOXIB
     Dates: start: 20190318
  5. METOPROLOL TARTRATE. [Concomitant]
     Active Substance: METOPROLOL TARTRATE
     Dates: start: 20190620
  6. GABAPENTIN. [Concomitant]
     Active Substance: GABAPENTIN
     Dates: start: 20181023
  7. HUMIRA [Suspect]
     Active Substance: ADALIMUMAB
     Indication: RHEUMATOID ARTHRITIS
     Dosage: ?          OTHER FREQUENCY:EVERY 7 DAYS;?
     Route: 058
     Dates: start: 20170805
  8. METHOTREXATE. [Concomitant]
     Active Substance: METHOTREXATE
     Dates: start: 20190624
  9. PANTOPRAZOLE [Concomitant]
     Active Substance: PANTOPRAZOLE
     Dates: start: 20190404
  10. IRBESAR/HCTZ [Concomitant]
     Dates: start: 20190213
  11. MISOPROSTOL. [Concomitant]
     Active Substance: MISOPROSTOL
     Dates: start: 20181005
  12. POT CL [Concomitant]
     Dates: start: 20190422
  13. PREDNISONE. [Concomitant]
     Active Substance: PREDNISONE
     Dates: start: 20190402
  14. ATORVASTATIN [Concomitant]
     Active Substance: ATORVASTATIN
     Dates: start: 20190311
  15. TYMLOS [Concomitant]
     Active Substance: ABALOPARATIDE
     Dates: start: 20190628
  16. LEFLUNOMIDE. [Concomitant]
     Active Substance: LEFLUNOMIDE
     Dates: start: 20190619

REACTIONS (1)
  - Spinal operation [None]

NARRATIVE: CASE EVENT DATE: 20190523
